FAERS Safety Report 8258076-X (Version None)
Quarter: 2012Q2

REPORT INFORMATION
  Report Type: 
  Country: None (occurrence: None)
  Receive Date: 20120404
  Receipt Date: 20120323
  Transmission Date: 20120825
  Serious: Yes (Other)
  Sender: FDA-Public Use
  Company Number: US-JNJFOC-20120302460

PATIENT
  Sex: Female
  Weight: 65.32 kg

DRUGS (3)
  1. REMICADE [Suspect]
     Indication: CROHN'S DISEASE
     Route: 042
     Dates: start: 20110101
  2. LORTAB [Concomitant]
     Indication: PAIN
     Route: 048
     Dates: start: 20100101
  3. SEROQUEL [Concomitant]
     Indication: MEMORY IMPAIRMENT
     Route: 048
     Dates: start: 20100101

REACTIONS (7)
  - SYNOVIAL RUPTURE [None]
  - HOT FLUSH [None]
  - BLISTER [None]
  - BODY HEIGHT DECREASED [None]
  - MUSCULAR WEAKNESS [None]
  - JOINT CREPITATION [None]
  - HYPERHIDROSIS [None]
